FAERS Safety Report 9723107 (Version 1)
Quarter: 2013Q4

REPORT INFORMATION
  Report Type: Spontaneous
  Country: AU (occurrence: AU)
  Receive Date: 20131202
  Receipt Date: 20131202
  Transmission Date: 20140711
  Serious: Yes (Life-Threatening, Hospitalization)
  Sender: FDA-Public Use
  Company Number: AU-ASTRAZENECA-2013SE86867

PATIENT
  Age: 30375 Day
  Sex: Female

DRUGS (4)
  1. PROPOFOL [Suspect]
     Indication: PARAESTHESIA
     Route: 042
     Dates: start: 20131001, end: 20131001
  2. FENTANYL [Suspect]
     Indication: PARAESTHESIA
     Route: 065
     Dates: start: 20131001, end: 20131001
  3. SEVOFLURANE [Suspect]
     Indication: PARAESTHESIA
     Route: 065
     Dates: start: 20131001, end: 20131001
  4. BETADINE [Concomitant]

REACTIONS (1)
  - Swollen tongue [Recovered/Resolved]
